FAERS Safety Report 12238221 (Version 1)
Quarter: 2016Q2

REPORT INFORMATION
  Report Type: Spontaneous
  Country: NL (occurrence: NL)
  Receive Date: 20160405
  Receipt Date: 20160405
  Transmission Date: 20160815
  Serious: Yes (Death)
  Sender: FDA-Public Use
  Company Number: NL-ELI_LILLY_AND_COMPANY-NL201604000145

PATIENT
  Age: 48 Year
  Sex: Female

DRUGS (1)
  1. ADCIRCA [Suspect]
     Active Substance: TADALAFIL
     Indication: PULMONARY HYPERTENSION
     Dosage: `20 MG, QD
     Route: 048
     Dates: start: 20140314

REACTIONS (1)
  - Death [Fatal]

NARRATIVE: CASE EVENT DATE: 20160325
